FAERS Safety Report 14904103 (Version 3)
Quarter: 2018Q2

REPORT INFORMATION
  Report Type: Report from Study
  Country: None (occurrence: ES)
  Receive Date: 20180516
  Receipt Date: 20180608
  Transmission Date: 20180711
  Serious: Yes (Hospitalization, Other)
  Sender: FDA-Public Use
  Company Number: ES-ABBVIE-18K-144-2257338-00

PATIENT
  Age: 75 Year
  Sex: Female

DRUGS (2)
  1. DUODOPA [Suspect]
     Active Substance: CARBIDOPA\LEVODOPA
     Route: 050
  2. DUODOPA [Suspect]
     Active Substance: CARBIDOPA\LEVODOPA
     Indication: PARKINSON^S DISEASE
     Dosage: CONTINUOUS DOSE WAS DECREASED FROM 5.6 TO 5.4
     Route: 050
     Dates: start: 20100519

REACTIONS (24)
  - Anxiety [Recovered/Resolved]
  - Freezing phenomenon [Not Recovered/Not Resolved]
  - Stoma site haemorrhage [Recovered/Resolved]
  - Dyskinesia [Unknown]
  - Hallucination [Recovered/Resolved]
  - Disorientation [Recovering/Resolving]
  - Fear of falling [Not Recovered/Not Resolved]
  - Confusional state [Not Recovered/Not Resolved]
  - Gastric haemorrhage [Unknown]
  - Freezing phenomenon [Recovered/Resolved]
  - Decubitus ulcer [Recovering/Resolving]
  - Delirium [Recovered/Resolved]
  - General physical health deterioration [Not Recovered/Not Resolved]
  - Gastric mucosal lesion [Unknown]
  - Stoma site erythema [Not Recovered/Not Resolved]
  - Stoma site discharge [Not Recovered/Not Resolved]
  - Stoma site extravasation [Recovered/Resolved]
  - Pulmonary embolism [Recovered/Resolved]
  - Drug effect incomplete [Unknown]
  - Thrombosis [Unknown]
  - Infected skin ulcer [Recovering/Resolving]
  - Impaired gastric emptying [Not Recovered/Not Resolved]
  - Obsessive-compulsive disorder [Not Recovered/Not Resolved]
  - Stoma site infection [Unknown]

NARRATIVE: CASE EVENT DATE: 201802
